FAERS Safety Report 6213248-0 (Version None)
Quarter: 2009Q2

REPORT INFORMATION
  Report Type: 
  Country: None (occurrence: None)
  Receive Date: 20090603
  Receipt Date: 20090601
  Transmission Date: 20091009
  Serious: Yes (Death)
  Sender: FDA-Public Use
  Company Number: PHEH2009US04116

PATIENT
  Sex: Female

DRUGS (1)
  1. GENTEAL MILD LUBRICANT EYE DROPS (NVO) [Suspect]

REACTIONS (1)
  - DEATH [None]
